FAERS Safety Report 15862580 (Version 1)
Quarter: 2019Q1

REPORT INFORMATION
  Report Type: Spontaneous
  Country: FR (occurrence: FR)
  Receive Date: 20190124
  Receipt Date: 20190124
  Transmission Date: 20190417
  Serious: Yes (Hospitalization)
  Sender: FDA-Public Use
  Company Number: FR-ASTRAZENECA-2019SE08287

PATIENT
  Age: 22 Year
  Sex: Female
  Weight: 60 kg

DRUGS (8)
  1. SOLACY [Suspect]
     Active Substance: CYSTINE\RETINOL\SULFUR
     Indication: TOXICITY TO VARIOUS AGENTS
     Route: 048
     Dates: start: 20180121, end: 20180121
  2. CODEINE PHOSPHATE HEMIHYDRATE [Suspect]
     Active Substance: CODEINE PHOSPHATE
     Indication: TOXICITY TO VARIOUS AGENTS
     Dosage: 2.0DF ONCE/SINGLE ADMINISTRATION
     Route: 048
     Dates: start: 20180121, end: 20180121
  3. VENTOLINE [Concomitant]
     Active Substance: ALBUTEROL
  4. CODEINE PHOSPHATE HEMIHYDRATE [Suspect]
     Active Substance: CODEINE PHOSPHATE
     Indication: TOXICITY TO VARIOUS AGENTS
     Dosage: 400 MG/20 MG, 6 DOSAGE FORM ONCE/SINGLE ADMINISTRATION
     Route: 048
     Dates: start: 20180121, end: 20180121
  5. PRIMALAN [Suspect]
     Active Substance: MEQUITAZINE
     Indication: TOXICITY TO VARIOUS AGENTS
     Dosage: 5.0DF ONCE/SINGLE ADMINISTRATION
     Route: 048
     Dates: start: 20180121, end: 20180121
  6. INEXIUM [Suspect]
     Active Substance: ESOMEPRAZOLE
     Indication: TOXICITY TO VARIOUS AGENTS
     Dosage: 3.0DF ONCE/SINGLE ADMINISTRATION
     Route: 048
     Dates: start: 20180121, end: 20180121
  7. MONOCRIXO [Suspect]
     Active Substance: TRAMADOL HYDROCHLORIDE
     Indication: TOXICITY TO VARIOUS AGENTS
     Dosage: 4.0DF ONCE/SINGLE ADMINISTRATION
     Route: 048
     Dates: start: 20180121, end: 20180121
  8. STRESAM [Suspect]
     Active Substance: ETIFOXINE
     Indication: TOXICITY TO VARIOUS AGENTS
     Route: 048
     Dates: start: 20180121, end: 20180121

REACTIONS (3)
  - Prothrombin level decreased [Recovered/Resolved]
  - Pruritus generalised [Recovered/Resolved]
  - Toxicity to various agents [Recovered/Resolved]

NARRATIVE: CASE EVENT DATE: 20180121
